FAERS Safety Report 8573061-6 (Version None)
Quarter: 2012Q3

REPORT INFORMATION
  Report Type: 
  Country: None (occurrence: None)
  Receive Date: 20120806
  Receipt Date: 20120727
  Transmission Date: 20120928
  Serious: Yes (Other)
  Sender: FDA-Public Use
  Company Number: JP-VERTEX PHARMACEUTICALS INC.-AE-2012-007242

PATIENT
  Age: 67 Year
  Sex: Female

DRUGS (10)
  1. RIBAVIRIN [Concomitant]
     Route: 048
     Dates: start: 20120405, end: 20120422
  2. RIBAVIRIN [Concomitant]
     Route: 048
     Dates: start: 20120507
  3. PEGINTERFERON ALFA-2B [Concomitant]
     Route: 058
     Dates: start: 20120507
  4. RIBAVIRIN [Concomitant]
     Route: 048
     Dates: start: 20120330, end: 20120404
  5. PRIMPERAN TAB [Concomitant]
     Route: 048
     Dates: start: 20120409, end: 20120416
  6. TELAVIC (TELAPREVIR) [Suspect]
     Indication: HEPATITIS C
     Route: 048
     Dates: start: 20120323, end: 20120412
  7. ANTIBATE [Concomitant]
     Route: 061
     Dates: start: 20120327, end: 20120423
  8. RIBAVIRIN [Concomitant]
     Indication: HEPATITIS C
     Route: 048
     Dates: start: 20120323, end: 20120329
  9. PEGINTERFERON ALFA-2B [Concomitant]
     Indication: HEPATITIS C
     Route: 058
     Dates: start: 20120323, end: 20120422
  10. DOGMATYL [Concomitant]
     Route: 048
     Dates: start: 20120327, end: 20120416

REACTIONS (3)
  - BLOOD CREATININE INCREASED [None]
  - ANAEMIA [None]
  - DECREASED APPETITE [None]
